FAERS Safety Report 5758136-9 (Version None)
Quarter: 2008Q2

REPORT INFORMATION
  Report Type: 
  Country: None (occurrence: None)
  Receive Date: 20080602
  Receipt Date: 20080602
  Transmission Date: 20081010
  Serious: No
  Sender: FDA-Public Use
  Company Number: None

PATIENT
  Age: 59 Year
  Sex: Male

DRUGS (1)
  1. LENALIDOMIDE [Suspect]
     Dates: start: 20080220, end: 20080403

REACTIONS (1)
  - RASH [None]
